FAERS Safety Report 7964385-1 (Version None)
Quarter: 2011Q4

REPORT INFORMATION
  Report Type: 
  Country: None (occurrence: None)
  Receive Date: 20111208
  Receipt Date: 20111205
  Transmission Date: 20120403
  Serious: Yes (Other)
  Sender: FDA-Public Use
  Company Number: VE-PFIZER INC-2011296530

PATIENT
  Sex: Female

DRUGS (1)
  1. NEURONTIN [Suspect]
     Indication: HERPES ZOSTER
     Dosage: UNK

REACTIONS (6)
  - TACHYCARDIA [None]
  - FEAR [None]
  - SHOCK [None]
  - VERTIGO [None]
  - FEELING ABNORMAL [None]
  - FEAR OF DEATH [None]
